FAERS Safety Report 8062677-1 (Version None)
Quarter: 2012Q1

REPORT INFORMATION
  Report Type: 
  Country: None (occurrence: None)
  Receive Date: 20120123
  Receipt Date: 20120113
  Transmission Date: 20120608
  Serious: Yes (Hospitalization)
  Sender: FDA-Public Use
  Company Number: US-BAYER-2012-000090

PATIENT
  Age: 36 Year
  Sex: Female
  Weight: 95 kg

DRUGS (3)
  1. LORATADINE [Concomitant]
     Dosage: 10 MG, UNK
  2. YAZ [Suspect]
     Indication: MENSTRUAL CYCLE MANAGEMENT
     Dosage: UNK
     Dates: start: 20080201, end: 20090801
  3. SIMVASTATIN [Concomitant]
     Dosage: 20 MG, UNK

REACTIONS (4)
  - CHOLELITHIASIS [None]
  - INJURY [None]
  - CHOLECYSTITIS ACUTE [None]
  - PAIN [None]
